FAERS Safety Report 6006932-5 (Version None)
Quarter: 2008Q4

REPORT INFORMATION
  Report Type: 
  Country: None (occurrence: None)
  Receive Date: 20081217
  Receipt Date: 20080213
  Transmission Date: 20090506
  Serious: No
  Sender: FDA-Public Use
  Company Number: US-ASTRAZENECA-2007UW26901

PATIENT
  Age: 73 Year
  Sex: Female
  Weight: 50.8 kg

DRUGS (5)
  1. CRESTOR [Suspect]
     Indication: BLOOD CHOLESTEROL INCREASED
     Route: 048
     Dates: start: 20070801
  2. CRESTOR [Suspect]
     Route: 048
     Dates: start: 20071001
  3. CRESTOR [Suspect]
     Route: 048
  4. COLESTID [Concomitant]
  5. DRUG FOR BONE DENSITY [Concomitant]

REACTIONS (3)
  - BLOOD CHOLESTEROL INCREASED [None]
  - BLOOD TRIGLYCERIDES ABNORMAL [None]
  - LOW DENSITY LIPOPROTEIN INCREASED [None]
